FAERS Safety Report 16304242 (Version 2)
Quarter: 2019Q2

REPORT INFORMATION
  Report Type: Spontaneous
  Country: TR (occurrence: TR)
  Receive Date: 20190513
  Receipt Date: 20190531
  Transmission Date: 20190711
  Serious: Yes (Death, Hospitalization)
  Sender: FDA-Public Use
  Company Number: TR-AMREGENT-20190906

PATIENT
  Sex: Female

DRUGS (1)
  1. FERINJECT [Suspect]
     Active Substance: FERRIC CARBOXYMALTOSE
     Dosage: 500 MG
     Route: 042

REACTIONS (5)
  - Hospitalisation [Unknown]
  - Fatigue [Unknown]
  - Respiratory failure [Fatal]
  - Nervous system disorder [Unknown]
  - Myelitis transverse [Unknown]
